FAERS Safety Report 10792874 (Version 2)
Quarter: 2015Q2

REPORT INFORMATION
  Report Type: Spontaneous
  Country: BR (occurrence: BR)
  Receive Date: 20150213
  Receipt Date: 20150602
  Transmission Date: 20150821
  Serious: Yes (Hospitalization)
  Sender: FDA-Public Use
  Company Number: BR-B.I. PHARMACEUTICALS,INC./RIDGEFIELD-2015-BI-06742BR

PATIENT
  Age: 69 Year
  Sex: Male
  Weight: 70.3 kg

DRUGS (6)
  1. MICARDIS [Suspect]
     Active Substance: TELMISARTAN
     Indication: HYPERTENSION
     Dosage: 80 MG
     Route: 048
     Dates: start: 2009, end: 201407
  2. FOLIC ACID. [Concomitant]
     Active Substance: FOLIC ACID
     Indication: ILL-DEFINED DISORDER
     Dosage: 5 MG
     Route: 065
     Dates: start: 20141111
  3. ADERA D3 [Concomitant]
     Indication: MINERAL SUPPLEMENTATION
     Dosage: 1000 MG
     Route: 065
     Dates: start: 201410
  4. ALOPURINOL [Concomitant]
     Active Substance: ALLOPURINOL
     Indication: BLOOD URIC ACID ABNORMAL
     Dosage: 100 MG
     Route: 065
     Dates: start: 201410
  5. MAREVAN [Concomitant]
     Active Substance: WARFARIN SODIUM
     Indication: ANTICOAGULANT THERAPY
     Dosage: 0.7143 MG
     Route: 065
     Dates: start: 20140819
  6. MAREVAN [Concomitant]
     Active Substance: WARFARIN SODIUM
     Dosage: 2.5 MG
     Route: 065
     Dates: start: 20140730

REACTIONS (12)
  - Pulmonary embolism [Recovered/Resolved with Sequelae]
  - Blood pressure increased [Recovered/Resolved]
  - Malaise [Recovered/Resolved]
  - Blood pressure increased [Unknown]
  - Weight decreased [Unknown]
  - Malaise [Recovered/Resolved]
  - Fatigue [Recovered/Resolved]
  - Chronic kidney disease [Not Recovered/Not Resolved]
  - Cyanosis [Recovered/Resolved]
  - Splenomegaly [Not Recovered/Not Resolved]
  - Blood creatinine increased [Not Recovered/Not Resolved]
  - Cardiac disorder [Recovered/Resolved]

NARRATIVE: CASE EVENT DATE: 20140723
